FAERS Safety Report 19520741 (Version 1)
Quarter: 2021Q3

REPORT INFORMATION
  Report Type: Report from Study
  Country: BR (occurrence: BR)
  Receive Date: 20210712
  Receipt Date: 20210712
  Transmission Date: 20211014
  Serious: Yes (Other)
  Sender: FDA-Public Use
  Company Number: NVSC2021BR151167

PATIENT
  Age: 68 Year
  Sex: Female

DRUGS (5)
  1. ZOMETA [Concomitant]
     Active Substance: ZOLEDRONIC ACID
     Indication: PRODUCT USED FOR UNKNOWN INDICATION
     Dosage: UNK (STARTED 5 YEARS AGO) (EVERY 3 MONTHS)
     Route: 065
  2. RIBOCICLIB. [Concomitant]
     Active Substance: RIBOCICLIB
     Indication: PRODUCT USED FOR UNKNOWN INDICATION
     Dosage: UNK
     Route: 065
  3. ATRANAX (TRANEXAMIC ACID) [Suspect]
     Active Substance: TRANEXAMIC ACID
     Indication: PRODUCT USED FOR UNKNOWN INDICATION
     Route: 065
  4. FASLODEX [Concomitant]
     Active Substance: FULVESTRANT
     Indication: PRODUCT USED FOR UNKNOWN INDICATION
     Dosage: UNK
     Route: 065
  5. ONDANSETRON [Suspect]
     Active Substance: ONDANSETRON
     Indication: NAUSEA
     Dosage: UNK
     Route: 065

REACTIONS (19)
  - Metastases to liver [Recovering/Resolving]
  - Chest pain [Recovered/Resolved]
  - Erythema [Recovered/Resolved]
  - Platelet count decreased [Unknown]
  - Metastases to spine [Unknown]
  - Nausea [Recovered/Resolved]
  - Accident [Recovering/Resolving]
  - Musculoskeletal chest pain [Recovering/Resolving]
  - Pain [Unknown]
  - Carbohydrate antigen 15-3 increased [Unknown]
  - Rash papular [Recovered/Resolved]
  - Skin mass [Recovered/Resolved]
  - Skin discolouration [Recovered/Resolved]
  - Drug hypersensitivity [Recovered/Resolved]
  - Back pain [Unknown]
  - Bone lesion [Unknown]
  - Skin discolouration [Recovered/Resolved]
  - Metastasis [Unknown]
  - White blood cell count decreased [Unknown]

NARRATIVE: CASE EVENT DATE: 20200807
